FAERS Safety Report 16112529 (Version 1)
Quarter: 2019Q2

REPORT INFORMATION
  Report Type: Spontaneous
  Country: US (occurrence: US)
  Receive Date: 20190324
  Receipt Date: 20190324
  Transmission Date: 20190711
  Serious: Yes (Other)
  Sender: FDA-Public Use
  Company Number: None

PATIENT
  Age: 69 Year
  Sex: Female
  Weight: 66.6 kg

DRUGS (15)
  1. NIFEDIPINE. [Concomitant]
     Active Substance: NIFEDIPINE
  2. FLUTICASONE PROPIONATE. [Concomitant]
     Active Substance: FLUTICASONE PROPIONATE
  3. LOSARTAN. [Concomitant]
     Active Substance: LOSARTAN
  4. ATORVASTATIN [Concomitant]
     Active Substance: ATORVASTATIN
  5. RANITIDINE. [Concomitant]
     Active Substance: RANITIDINE
  6. METFORMIN [Concomitant]
     Active Substance: METFORMIN HYDROCHLORIDE
  7. MONTELUKAST [Concomitant]
     Active Substance: MONTELUKAST SODIUM
  8. ATENOLOL. [Concomitant]
     Active Substance: ATENOLOL
  9. MAGNESIUM [Concomitant]
     Active Substance: MAGNESIUM
  10. RESTASIS [Suspect]
     Active Substance: CYCLOSPORINE
     Indication: DRY EYE
     Dosage: ?          QUANTITY:60 60 PARTIAL REFIL;?
     Route: 047
     Dates: start: 20180813, end: 20180901
  11. LATANOPROST. [Concomitant]
     Active Substance: LATANOPROST
  12. NTG [Concomitant]
     Active Substance: NITROGLYCERIN
  13. PANTROPASOLE [Concomitant]
  14. BENADRYL [Concomitant]
     Active Substance: DIPHENHYDRAMINE HYDROCHLORIDE
  15. MAGNESIUM [Concomitant]
     Active Substance: MAGNESIUM

REACTIONS (7)
  - Skin hypertrophy [None]
  - Eye pain [None]
  - Eye discharge [None]
  - Skin discolouration [None]
  - Eye irritation [None]
  - Vision blurred [None]
  - Eye pruritus [None]

NARRATIVE: CASE EVENT DATE: 20180813
